FAERS Safety Report 13277487 (Version 2)
Quarter: 2017Q1

REPORT INFORMATION
  Report Type: Spontaneous
  Country: ES (occurrence: ES)
  Receive Date: 20170228
  Receipt Date: 20170317
  Transmission Date: 20170428
  Serious: Yes (Other)
  Sender: FDA-Public Use
  Company Number: ES-GILEAD-2016-0219611

PATIENT
  Age: 62 Year
  Sex: Female

DRUGS (27)
  1. PREDNISONE. [Concomitant]
     Active Substance: PREDNISONE
     Dosage: 20 MG, BID
  2. SEGURIL [Concomitant]
     Active Substance: FUROSEMIDE
     Dosage: 1 DF, TID
  3. URSOBILANE [Concomitant]
  4. SINTROM [Concomitant]
     Active Substance: ACENOCOUMAROL
     Indication: ATRIAL FIBRILLATION
  5. ACYCLOVIR                          /00587301/ [Concomitant]
     Active Substance: ACYCLOVIR
  6. NYSTATIN. [Concomitant]
     Active Substance: NYSTATIN
  7. OMEPRAZOLE. [Concomitant]
     Active Substance: OMEPRAZOLE
  8. ESCITALOPRAM [Concomitant]
     Active Substance: ESCITALOPRAM OXALATE
     Dosage: 10 MG, UNK
  9. CLOBETASOL [Concomitant]
     Active Substance: CLOBETASOL
  10. ENTECAVIR. [Concomitant]
     Active Substance: ENTECAVIR
     Dosage: 1 DF, QD
  11. APIDRA SOLOSTAR [Concomitant]
     Active Substance: INSULIN GLULISINE
  12. LANTUS [Concomitant]
     Active Substance: INSULIN GLARGINE
  13. FLUCONAZOL [Concomitant]
     Active Substance: FLUCONAZOLE
     Indication: OROPHARYNGEAL CANDIDIASIS
  14. MYCOSTATIN [Concomitant]
     Active Substance: NYSTATIN
  15. DEXKETOPROFENO                     /01363801/ [Concomitant]
  16. VIREAD [Suspect]
     Active Substance: TENOFOVIR DISOPROXIL FUMARATE
     Indication: HEPATITIS B
     Dosage: 1 DF, QD
     Route: 065
  17. BISOPRIL [Concomitant]
     Dosage: 1 DF, QD
  18. PREVENCOR                          /01326102/ [Concomitant]
     Active Substance: ATORVASTATIN CALCIUM
     Dosage: 1 DF, QD
  19. ENOXAPARINA [Concomitant]
     Active Substance: ENOXAPARIN
  20. SEPTRIN [Concomitant]
     Active Substance: SULFAMETHOXAZOLE\TRIMETHOPRIM
  21. PREDNISONE. [Concomitant]
     Active Substance: PREDNISONE
     Dosage: 10 MG, QD
  22. AZITHROMYCIN ANHYDROUS. [Concomitant]
     Active Substance: AZITHROMYCIN ANHYDROUS
  23. EUTIROX [Concomitant]
     Active Substance: LEVOTHYROXINE SODIUM
     Dosage: 1 DF, QD
  24. PROGRAF [Concomitant]
     Active Substance: TACROLIMUS\TACROLIMUS ANHYDROUS
     Dosage: 3 MG, UNK
  25. DIAZEPAM. [Concomitant]
     Active Substance: DIAZEPAM
  26. METAMIZOL                          /06276702/ [Concomitant]
     Active Substance: METAMIZOLE
  27. XOTERNA [Concomitant]

REACTIONS (2)
  - Drug ineffective [Recovering/Resolving]
  - Viral load increased [Recovering/Resolving]
